FAERS Safety Report 4764610-4 (Version None)
Quarter: 2005Q3

REPORT INFORMATION
  Report Type: 
  Country: None (occurrence: None)
  Receive Date: 20050909
  Receipt Date: 20050829
  Transmission Date: 20060218
  Serious: Yes (Other)
  Sender: FDA-Public Use
  Company Number: 2005GB01685

PATIENT
  Age: 74 Year
  Sex: Female

DRUGS (2)
  1. CRESTOR [Suspect]
     Indication: HYPERLIPIDAEMIA
     Route: 048
     Dates: start: 20050425, end: 20050715
  2. PARIET [Concomitant]

REACTIONS (2)
  - COORDINATION ABNORMAL [None]
  - DIZZINESS [None]
